FAERS Safety Report 20454695 (Version 2)
Quarter: 2022Q2

REPORT INFORMATION
  Report Type: Spontaneous
  Country: CA (occurrence: CA)
  Receive Date: 20220210
  Receipt Date: 20220519
  Transmission Date: 20220721
  Serious: Yes (Life-Threatening, Hospitalization)
  Sender: FDA-Public Use
  Company Number: CA-ELI_LILLY_AND_COMPANY-CA202202002814

PATIENT
  Age: 82 Year
  Sex: Female

DRUGS (18)
  1. OLANZAPINE [Suspect]
     Active Substance: OLANZAPINE
     Indication: Product used for unknown indication
     Dosage: 10 MG, UNKNOWN
     Route: 065
  2. OLANZAPINE [Suspect]
     Active Substance: OLANZAPINE
     Indication: Phagophobia
  3. OLANZAPINE [Suspect]
     Active Substance: OLANZAPINE
     Indication: Dysphagia
  4. OLANZAPINE [Suspect]
     Active Substance: OLANZAPINE
     Indication: Choking sensation
  5. DULOXETINE [Suspect]
     Active Substance: DULOXETINE
     Indication: Phagophobia
     Dosage: 60 MG, UNKNOWN
     Route: 065
  6. DULOXETINE [Suspect]
     Active Substance: DULOXETINE
     Indication: Choking sensation
  7. LORAZEPAM [Suspect]
     Active Substance: LORAZEPAM
     Indication: Phagophobia
     Dosage: 10 MG, UNKNOWN
     Route: 065
  8. LORAZEPAM [Suspect]
     Active Substance: LORAZEPAM
     Indication: Choking sensation
  9. LORAZEPAM [Suspect]
     Active Substance: LORAZEPAM
     Indication: Dysphagia
  10. MIRTAZAPINE [Suspect]
     Active Substance: MIRTAZAPINE
     Indication: Phagophobia
     Dosage: 45 MG, UNKNOWN
     Route: 065
  11. MIRTAZAPINE [Suspect]
     Active Substance: MIRTAZAPINE
     Indication: Choking sensation
  12. MIRTAZAPINE [Suspect]
     Active Substance: MIRTAZAPINE
     Indication: Dysphagia
  13. RISPERIDONE [Suspect]
     Active Substance: RISPERIDONE
     Indication: Phagophobia
     Dosage: UNK, UNKNOWN
     Route: 065
  14. RISPERIDONE [Suspect]
     Active Substance: RISPERIDONE
     Indication: Choking sensation
  15. RISPERIDONE [Suspect]
     Active Substance: RISPERIDONE
     Indication: Dysphagia
  16. RISPERIDONE [Suspect]
     Active Substance: RISPERIDONE
     Indication: Product used for unknown indication
  17. VENLAFAXINE HYDROCHLORIDE [Suspect]
     Active Substance: VENLAFAXINE HYDROCHLORIDE
     Indication: Phagophobia
     Dosage: UNK, UNKNOWN
     Route: 065
  18. VENLAFAXINE HYDROCHLORIDE [Suspect]
     Active Substance: VENLAFAXINE HYDROCHLORIDE
     Indication: Choking sensation

REACTIONS (5)
  - Phagophobia [Unknown]
  - Tardive dyskinesia [Unknown]
  - Drug resistance [Unknown]
  - Drug ineffective [Unknown]
  - Therapeutic product effect incomplete [Unknown]
